FAERS Safety Report 8031646-X (Version None)
Quarter: 2012Q1

REPORT INFORMATION
  Report Type: 
  Country: None (occurrence: None)
  Receive Date: 20120109
  Receipt Date: 20111228
  Transmission Date: 20120608
  Serious: Yes (Other)
  Sender: FDA-Public Use
  Company Number: US-ELI_LILLY_AND_COMPANY-US201111000658

PATIENT
  Sex: Female
  Weight: 56.689 kg

DRUGS (20)
  1. IRON [Concomitant]
  2. VITAMIN E                            /001105/ [Concomitant]
  3. HYDRALAZINE HCL [Concomitant]
  4. FORTEO [Suspect]
     Dosage: 20 UG, QD
     Route: 065
     Dates: start: 20111214
  5. VALIUM [Concomitant]
  6. LOPRESSOR [Concomitant]
     Dosage: 400 MG, QD
  7. MELOXICAM [Concomitant]
  8. FOLIC ACID [Concomitant]
  9. CENTRUM SILVER [Concomitant]
  10. DEMADEX [Concomitant]
  11. VITAMIN B NOS [Concomitant]
  12. VITAMIN D [Concomitant]
  13. FLEXERIL [Concomitant]
  14. FORTEO [Suspect]
     Indication: OSTEOPOROSIS
     Dosage: 20 UG, QD
     Dates: start: 20110725
  15. CALCIUM ACETATE [Concomitant]
  16. VITAMIN C [Concomitant]
  17. FORTEO [Suspect]
     Dosage: 20 UG, QD
     Route: 065
  18. LEVOXYL [Concomitant]
  19. VITAMIN D [Concomitant]
  20. DEMEROL [Concomitant]

REACTIONS (9)
  - ASTHENIA [None]
  - CONVULSION [None]
  - CEREBROVASCULAR ACCIDENT [None]
  - FATIGUE [None]
  - HERNIA [None]
  - SPEECH DISORDER [None]
  - HEADACHE [None]
  - TREMOR [None]
  - AMNESIA [None]
